FAERS Safety Report 5793506-4 (Version None)
Quarter: 2008Q2

REPORT INFORMATION
  Report Type: 
  Country: None (occurrence: None)
  Receive Date: 20080627
  Receipt Date: 20080619
  Transmission Date: 20081010
  Serious: Yes (Life-Threatening, Other)
  Sender: FDA-Public Use
  Company Number: ZA-JNJFOC-20080604704

PATIENT
  Sex: Female

DRUGS (1)
  1. RISPERDAL CONSTA [Suspect]
     Indication: DRUG USE FOR UNKNOWN INDICATION
     Route: 030

REACTIONS (7)
  - APHASIA [None]
  - COMA [None]
  - DEFAECATION URGENCY [None]
  - DYSSTASIA [None]
  - ENURESIS [None]
  - FAECAL INCONTINENCE [None]
  - SEDATION [None]
